FAERS Safety Report 9769097 (Version 1)
Quarter: 2013Q4

REPORT INFORMATION
  Report Type: Spontaneous
  Country: US (occurrence: None)
  Receive Date: 20131217
  Receipt Date: 20131217
  Transmission Date: 20140711
  Serious: Yes (Disabling)
  Sender: FDA-Public Use
  Company Number: None

PATIENT
  Age: 31 Year
  Sex: Male
  Weight: 68.04 kg

DRUGS (1)
  1. MEFLOQUINE [Suspect]
     Indication: MALARIA PROPHYLAXIS
     Route: 048
     Dates: start: 20101130, end: 20111220

REACTIONS (7)
  - Syncope [None]
  - Cold sweat [None]
  - Hyperhidrosis [None]
  - Tinnitus [None]
  - Paranoia [None]
  - Anxiety [None]
  - Post-traumatic stress disorder [None]
